FAERS Safety Report 23044474 (Version 1)
Quarter: 2023Q4

REPORT INFORMATION
  Report Type: Spontaneous
  Country: JP (occurrence: JP)
  Receive Date: 20231009
  Receipt Date: 20231009
  Transmission Date: 20240110
  Serious: Yes (Hospitalization)
  Sender: FDA-Public Use
  Company Number: JP-STERISCIENCE B.V.-2023-ST-001994

PATIENT
  Age: 11 Year
  Sex: Female

DRUGS (2)
  1. VANCOMYCIN [Suspect]
     Active Substance: VANCOMYCIN
     Indication: Endocarditis bacterial
     Dosage: DOSE : 10-30 MG/KG/DAY FOR APPROXIMATELY 6 WEEKS, TEMPORARILY SWITCHED TO DAPTOMYCIN FOR 1 WEEK
     Route: 065
  2. BACTRIM [Concomitant]
     Active Substance: SULFAMETHOXAZOLE\TRIMETHOPRIM
     Indication: Endocarditis bacterial
     Dosage: 10 MILLIGRAM/KILOGRAM
     Route: 065

REACTIONS (2)
  - Drug eruption [Unknown]
  - Granulocytopenia [Unknown]
